FAERS Safety Report 18646033 (Version 4)
Quarter: 2021Q2

REPORT INFORMATION
  Report Type: Report from Study
  Country: ES (occurrence: ES)
  Receive Date: 20201221
  Receipt Date: 20210503
  Transmission Date: 20210717
  Serious: Yes (Hospitalization)
  Sender: FDA-Public Use
  Company Number: ES-UCBSA-2020052080

PATIENT
  Age: 46 Year
  Sex: Female

DRUGS (1)
  1. ROTIGOTINE PD [Suspect]
     Active Substance: ROTIGOTINE
     Indication: PARKINSON^S DISEASE
     Dosage: UNK
     Route: 062

REACTIONS (3)
  - Hospitalisation [Unknown]
  - Device adhesion issue [Unknown]
  - Application site pain [Unknown]

NARRATIVE: CASE EVENT DATE: 2020
